FAERS Safety Report 4311972-8 (Version None)
Quarter: 2004Q1

REPORT INFORMATION
  Report Type: 
  Country: None (occurrence: None)
  Receive Date: 20040303
  Receipt Date: 20040218
  Transmission Date: 20041129
  Serious: No
  Sender: FDA-Public Use
  Company Number: 2004SE00855

PATIENT
  Age: 72 Year
  Sex: Female
  Weight: 103 kg

DRUGS (1)
  1. NOLVADEX [Suspect]
     Indication: BREAST CANCER
     Dosage: ONE TABLET A DAY
     Dates: start: 20010101

REACTIONS (1)
  - HEPATIC NEOPLASM MALIGNANT [None]
